FAERS Safety Report 5337875-8 (Version None)
Quarter: 2007Q2

REPORT INFORMATION
  Report Type: 
  Country: None (occurrence: None)
  Receive Date: 20070309
  Receipt Date: 20060222
  Transmission Date: 20071010
  Serious: Yes (Hospitalization, Other)
  Sender: FDA-Public Use
  Company Number: 2006VX000233

PATIENT
  Age: 58 Year
  Sex: Male

DRUGS (11)
  1. PERMAX [Suspect]
     Indication: PARKINSON'S DISEASE
     Dosage: SEE IMAGE
     Dates: end: 19990101
  2. PERMAX [Suspect]
     Indication: PARKINSON'S DISEASE
     Dosage: SEE IMAGE
     Dates: end: 20020101
  3. PERMAX [Suspect]
     Indication: PARKINSON'S DISEASE
     Dosage: SEE IMAGE
     Dates: start: 19981201, end: 20040706
  4. SINEMET [Concomitant]
  5. PRAMIPEXOLE DIHYDROCHLORIDE [Concomitant]
  6. DIHYDROCHLORIDE [Concomitant]
  7. COMTAN [Concomitant]
  8. ROPINIROLE HCL [Concomitant]
  9. VICODIN [Concomitant]
  10. ZONISAMIDE [Concomitant]
  11. IDOMETHINE [Concomitant]

REACTIONS (18)
  - AFFECT LABILITY [None]
  - ANTISOCIAL PERSONALITY DISORDER [None]
  - BEREAVEMENT REACTION [None]
  - CELLULITIS GANGRENOUS [None]
  - CHEST PAIN [None]
  - DEPRESSION [None]
  - DIABETES MELLITUS [None]
  - DIZZINESS [None]
  - DYSKINESIA [None]
  - FALL [None]
  - HYPERHIDROSIS [None]
  - INTENTIONAL DRUG MISUSE [None]
  - NAUSEA [None]
  - NERVOUSNESS [None]
  - OBSESSIVE-COMPULSIVE DISORDER [None]
  - PARKINSON'S DISEASE [None]
  - PATHOLOGICAL GAMBLING [None]
  - SUICIDAL IDEATION [None]
